FAERS Safety Report 10470600 (Version 1)
Quarter: 2014Q3

REPORT INFORMATION
  Report Type: Spontaneous
  Country: IT (occurrence: IT)
  Receive Date: 20140923
  Receipt Date: 20140923
  Transmission Date: 20150326
  Serious: Yes (Other)
  Sender: FDA-Public Use
  Company Number: PHHY2014IT119763

PATIENT
  Age: 44 Year
  Sex: Female

DRUGS (6)
  1. CICLOSPORIN [Suspect]
     Active Substance: CYCLOSPORINE
     Indication: SYSTEMIC LUPUS ERYTHEMATOSUS
  2. GLUCOCORTICOIDS [Suspect]
     Active Substance: UNSPECIFIED INGREDIENT
  3. CIPROFLOXACIN. [Suspect]
     Active Substance: CIPROFLOXACIN
     Dosage: 250 MG, BID
  4. QUINACRINE [Concomitant]
     Active Substance: QUINACRINE
  5. PARACETAMOL [Suspect]
     Active Substance: ACETAMINOPHEN
     Dosage: 4 G, PER DAY
  6. AMOXICILLIN-CLAVULANIC ACID [Suspect]
     Active Substance: AMOXICILLIN\CLAVULANIC ACID
     Dosage: 3 G, PER DAY

REACTIONS (13)
  - Leukocyturia [Recovering/Resolving]
  - Drug-induced liver injury [Unknown]
  - Arthralgia [Recovering/Resolving]
  - Urinary tract infection [Recovering/Resolving]
  - Rash erythematous [Recovering/Resolving]
  - Drug ineffective [Unknown]
  - Systemic lupus erythematosus [Unknown]
  - Proteinuria [Recovering/Resolving]
  - Pyrexia [Recovering/Resolving]
  - Back pain [Recovering/Resolving]
  - Transaminases increased [Unknown]
  - Chills [Recovering/Resolving]
  - Cholelithiasis [Unknown]
